FAERS Safety Report 13359030 (Version 4)
Quarter: 2017Q3

REPORT INFORMATION
  Report Type: Spontaneous
  Country: US (occurrence: US)
  Receive Date: 20170322
  Receipt Date: 20170816
  Transmission Date: 20171127
  Serious: Yes (Hospitalization, Other)
  Sender: FDA-Public Use
  Company Number: US-PFIZER INC-2017117979

PATIENT
  Age: 54 Year
  Sex: Female
  Weight: 59.42 kg

DRUGS (6)
  1. PREMARIN [Suspect]
     Active Substance: ESTROGENS, CONJUGATED
     Indication: HORMONE REPLACEMENT THERAPY
     Dosage: 1.25 MG, 1X/DAY
     Route: 048
  2. CYCLOBENZAPRINE /00428402/ [Concomitant]
     Active Substance: CYCLOBENZAPRINE
     Indication: ARTHRITIS
     Dosage: UNK
     Dates: start: 2016
  3. VALIUM [Concomitant]
     Active Substance: DIAZEPAM
     Indication: NERVOUSNESS
     Dosage: UNK
     Dates: start: 2000
  4. PREMARIN [Suspect]
     Active Substance: ESTROGENS, CONJUGATED
     Indication: MENOPAUSAL SYMPTOMS
     Dosage: 1.25 MG, 1X/DAY
     Route: 048
     Dates: start: 1987
  5. PRENATAL VITAMINS /02014401/ [Concomitant]
     Active Substance: VITAMINS
     Dosage: UNK, 1X/DAY
     Dates: start: 2000
  6. PROLIA [Concomitant]
     Active Substance: DENOSUMAB
     Indication: OSTEOPOROSIS
     Dosage: UNK

REACTIONS (9)
  - Headache [Not Recovered/Not Resolved]
  - Hyperthyroidism [Recovered/Resolved]
  - Weight decreased [Recovered/Resolved]
  - Osteoporosis [Recovered/Resolved]
  - Vitamin D decreased [Recovered/Resolved]
  - Musculoskeletal discomfort [Unknown]
  - Dacryostenosis acquired [Recovered/Resolved]
  - Hypothyroidism [Recovered/Resolved]
  - Feeling abnormal [Recovered/Resolved]

NARRATIVE: CASE EVENT DATE: 2006
